FAERS Safety Report 7995854-6 (Version None)
Quarter: 2011Q4

REPORT INFORMATION
  Report Type: 
  Country: None (occurrence: None)
  Receive Date: 20111220
  Receipt Date: 20111212
  Transmission Date: 20120403
  Serious: Yes (Other)
  Sender: FDA-Public Use
  Company Number: US-JNJFOC-20111205455

PATIENT
  Sex: Female
  Weight: 63.5 kg

DRUGS (4)
  1. PROZAC [Concomitant]
     Indication: DEPRESSION
     Route: 048
  2. TOPAMAX [Suspect]
     Indication: MIGRAINE
     Route: 048
     Dates: start: 20111101
  3. TOPAMAX [Suspect]
     Route: 048
     Dates: start: 20110801, end: 20111101
  4. NEXIUM [Concomitant]
     Indication: GASTROENTERITIS
     Route: 048

REACTIONS (4)
  - GALLBLADDER PAIN [None]
  - OESOPHAGEAL ULCER [None]
  - ABDOMINAL PAIN UPPER [None]
  - LYMPHADENOPATHY [None]
